FAERS Safety Report 6401531-5 (Version None)
Quarter: 2009Q4

REPORT INFORMATION
  Report Type: 
  Country: None (occurrence: None)
  Receive Date: 20091013
  Receipt Date: 20091013
  Transmission Date: 20100525
  Serious: Yes (Other)
  Sender: FDA-Public Use
  Company Number: None

PATIENT
  Age: 66 Year
  Sex: Female
  Weight: 80.7403 kg

DRUGS (1)
  1. PLAVIX [Suspect]
     Indication: ANGIOPLASTY
     Dosage: 1X DAILY
     Dates: start: 20090602, end: 20090801

REACTIONS (1)
  - EPISTAXIS [None]
